FAERS Safety Report 20764753 (Version 2)
Quarter: 2022Q2

REPORT INFORMATION
  Report Type: Spontaneous
  Country: CA (occurrence: CA)
  Receive Date: 20220428
  Receipt Date: 20220505
  Transmission Date: 20220721
  Serious: Yes (Disabling, Other)
  Sender: FDA-Public Use
  Company Number: CA-TEVA-2022-CA-2030199

PATIENT
  Age: 30 Year
  Sex: Male

DRUGS (2)
  1. CISPLATIN [Suspect]
     Active Substance: CISPLATIN
     Indication: Testicular cancer metastatic
     Dosage: ADMINISTERED ON DAYS 1 TO 5 EVERY 21 DAYS.
     Route: 065
  2. ETOPOSIDE [Suspect]
     Active Substance: ETOPOSIDE
     Indication: Testicular cancer metastatic
     Dosage: 60% DOSE; ADMINISTERED ON DAYS 1 TO 5 EVERY 21 DAYS.
     Route: 065

REACTIONS (3)
  - Febrile neutropenia [Unknown]
  - Peripheral sensorimotor neuropathy [Recovering/Resolving]
  - Loss of personal independence in daily activities [Recovering/Resolving]
